FAERS Safety Report 9837976 (Version 2)
Quarter: 2014Q1

REPORT INFORMATION
  Report Type: Spontaneous
  Country: CA (occurrence: CA)
  Receive Date: 20140123
  Receipt Date: 20140123
  Transmission Date: 20141002
  Serious: Yes (Other)
  Sender: FDA-Public Use
  Company Number: CA-BEH-2013039073

PATIENT
  Age: 78 Year
  Sex: Male
  Weight: 88 kg

DRUGS (13)
  1. PRIVIGEN [Suspect]
     Indication: IMMUNE THROMBOCYTOPENIC PURPURA
     Dosage: START 26 ML/H, FINISHED AT 200 ML/H
     Route: 042
     Dates: start: 20131114, end: 20131114
  2. PRIVIGEN [Suspect]
     Dosage: 26 ML/H, 52 ML/H, 200 ML/H
     Route: 042
  3. MONOCOR [Concomitant]
     Dosage: IN AM
     Route: 048
  4. NORVASC [Concomitant]
     Route: 048
  5. LASIX [Concomitant]
     Dosage: IN AM
     Route: 048
  6. LIPITOR [Concomitant]
     Route: 048
  7. FLOMAX [Concomitant]
     Route: 048
  8. PANTOLOC [Concomitant]
     Dosage: IN AM
     Route: 048
  9. SERAX [Concomitant]
     Route: 048
  10. PROSCAR [Concomitant]
     Route: 048
  11. ALLOPURINOL [Concomitant]
     Route: 048
  12. IRON SULFATE [Concomitant]
     Route: 048
  13. CALCIUM CARBONATE [Concomitant]
     Route: 048

REACTIONS (7)
  - Hypersensitivity [Recovered/Resolved]
  - Tachycardia [Recovered/Resolved]
  - Pyrexia [Recovered/Resolved]
  - Chills [Recovered/Resolved]
  - Hypertension [Recovered/Resolved]
  - Dyspnoea [Recovered/Resolved]
  - General physical health deterioration [Recovered/Resolved]
